FAERS Safety Report 8829930 (Version 3)
Quarter: 2015Q3

REPORT INFORMATION
  Report Type: Report from Study
  Country: US (occurrence: US)
  Receive Date: 20121008
  Receipt Date: 20150824
  Transmission Date: 20151125
  Serious: Yes (Death, Hospitalization, Other)
  Sender: FDA-Public Use
  Company Number: US-ROCHE-1097003

PATIENT
  Sex: Female

DRUGS (15)
  1. POTASSIUM CHLORIDE. [Concomitant]
     Active Substance: POTASSIUM CHLORIDE
     Dosage: EVERY MORNING
     Route: 048
  2. PEPCID [Concomitant]
     Active Substance: FAMOTIDINE
     Route: 065
  3. PHENERGAN [Concomitant]
     Active Substance: PROMETHAZINE HYDROCHLORIDE
     Indication: NAUSEA
     Dosage: 12.5-25 MG AS NEEDED FOR EVERY 4-6 HOURS
     Route: 065
  4. K-DUR [Concomitant]
     Active Substance: POTASSIUM CHLORIDE
     Route: 065
  5. RITUXAN [Suspect]
     Active Substance: RITUXIMAB
     Indication: WALDENSTROM^S MACROGLOBULINAEMIA
     Route: 042
  6. TYLENOL [Concomitant]
     Active Substance: ACETAMINOPHEN
     Dosage: EVERY 4-6 HOURS AS NEEDED
     Route: 048
  7. PAXIL (UNITED STATES) [Concomitant]
     Route: 048
  8. OXYCONTIN [Concomitant]
     Active Substance: OXYCODONE HYDROCHLORIDE
     Route: 048
  9. BENADRYL [Concomitant]
     Active Substance: DIPHENHYDRAMINE HYDROCHLORIDE
     Route: 065
  10. PERCOCET [Concomitant]
     Active Substance: ACETAMINOPHEN\OXYCODONE HYDROCHLORIDE
     Indication: BREAKTHROUGH PAIN
     Dosage: FOR EVERY 4-6 HOURS AS NEEDED
     Route: 048
  11. FERROUS SULFATE [Concomitant]
     Active Substance: FERROUS SULFATE\FERROUS SULFATE, DRIED
     Route: 048
  12. RITUXAN [Suspect]
     Active Substance: RITUXIMAB
     Indication: OFF LABEL USE
     Route: 042
  13. LASIX [Concomitant]
     Active Substance: FUROSEMIDE
     Dosage: EVERY MORNING
     Route: 048
  14. VASOTEC [Concomitant]
     Active Substance: ENALAPRIL MALEATE
     Route: 065
  15. PROCRIT [Concomitant]
     Active Substance: ERYTHROPOIETIN

REACTIONS (15)
  - Fracture pain [Unknown]
  - Pubis fracture [Unknown]
  - Death [Fatal]
  - Hypotension [Unknown]
  - Malaise [Unknown]
  - Syncope [Unknown]
  - Blood immunoglobulin M increased [Unknown]
  - Cholelithiasis [Unknown]
  - Asthenia [Unknown]
  - Arthralgia [Unknown]
  - Hyperhidrosis [Unknown]
  - Fatigue [Unknown]
  - Hypokalaemia [Unknown]
  - Back pain [Unknown]
  - Pallor [Unknown]
